FAERS Safety Report 12729473 (Version 4)
Quarter: 2020Q1

REPORT INFORMATION
  Report Type: Report from Study
  Country: CO (occurrence: CO)
  Receive Date: 20160909
  Receipt Date: 20200228
  Transmission Date: 20200409
  Serious: Yes (Hospitalization, Other)
  Sender: FDA-Public Use
  Company Number: CO-JNJFOC-20160904459

PATIENT
  Age: 58 Year
  Sex: Male
  Weight: 69 kg

DRUGS (1)
  1. STELARA [Suspect]
     Active Substance: USTEKINUMAB
     Indication: PSORIASIS
     Route: 058
     Dates: start: 20150824

REACTIONS (10)
  - Fall [Recovered/Resolved with Sequelae]
  - Lipoma [Recovering/Resolving]
  - Tooth fracture [Unknown]
  - Product use issue [Unknown]
  - Osteoarthritis [Recovering/Resolving]
  - Off label use [Unknown]
  - Abscess [Recovering/Resolving]
  - Cataract [Recovering/Resolving]
  - Muscle injury [Recovering/Resolving]
  - Joint injury [Recovering/Resolving]

NARRATIVE: CASE EVENT DATE: 20150824
